FAERS Safety Report 18764748 (Version 1)
Quarter: 2021Q1

REPORT INFORMATION
  Report Type: Other
  Country: DE (occurrence: DE)
  Receive Date: 20210120
  Receipt Date: 20210120
  Transmission Date: 20210419
  Serious: Yes (Life-Threatening, Hospitalization)
  Sender: FDA-Public Use
  Company Number: DE-INCYTE CORPORATION-2021IN000070

PATIENT

DRUGS (3)
  1. NEORECORMON [Concomitant]
     Active Substance: ERYTHROPOIETIN
     Indication: POLYCYTHAEMIA
     Dosage: UNK, QW (SEIT SOMMER 2020 1X W?CHENTLICH)
     Route: 058
     Dates: start: 2020
  2. LEGALON [Concomitant]
     Active Substance: DIETARY SUPPLEMENT\HERBALS\MILK THISTLE
     Indication: LIVER FUNCTION TEST
     Dosage: 1 DF, QD
     Route: 048
     Dates: start: 2009
  3. JAKAVI [Suspect]
     Active Substance: RUXOLITINIB
     Indication: POLYCYTHAEMIA VERA
     Dosage: 10 MG, Q12H (1?0?1 ERSTMALIGE GABE)
     Route: 048
     Dates: start: 20201023, end: 20201123

REACTIONS (11)
  - Weight decreased [Unknown]
  - Red blood cell count decreased [Not Recovered/Not Resolved]
  - Decreased appetite [Unknown]
  - Pallor [Unknown]
  - Nausea [Unknown]
  - Fatigue [Unknown]
  - Renal failure [Not Recovered/Not Resolved]
  - Dizziness [Unknown]
  - Haemoglobin decreased [Not Recovered/Not Resolved]
  - Nail discolouration [Unknown]
  - Malaise [Unknown]

NARRATIVE: CASE EVENT DATE: 202011
